FAERS Safety Report 4733962-3 (Version None)
Quarter: 2005Q3

REPORT INFORMATION
  Report Type: 
  Country: None (occurrence: None)
  Receive Date: 20050721
  Receipt Date: 20050511
  Transmission Date: 20060218
  Serious: No
  Sender: FDA-Public Use
  Company Number: 2005SP000710

PATIENT
  Age: 51 Year
  Sex: Female
  Weight: 62.5964 kg

DRUGS (2)
  1. LUNESTA [Suspect]
     Indication: INSOMNIA
     Dosage: 3 MG; HS; ORAL
     Route: 048
     Dates: start: 20050509, end: 20050509
  2. XANAX [Concomitant]

REACTIONS (4)
  - ANXIETY [None]
  - DIARRHOEA [None]
  - HYPERVENTILATION [None]
  - TACHYCARDIA [None]
